FAERS Safety Report 12373494 (Version 1)
Quarter: 2016Q2

REPORT INFORMATION
  Report Type: Spontaneous
  Country: DO (occurrence: DO)
  Receive Date: 20160516
  Receipt Date: 20160516
  Transmission Date: 20160815
  Serious: Yes (Hospitalization)
  Sender: FDA-Public Use
  Company Number: DO-BAUSCH-BL-2016-011486

PATIENT
  Age: 28 Year
  Sex: Male
  Weight: 82 kg

DRUGS (1)
  1. MESTINON [Suspect]
     Active Substance: PYRIDOSTIGMINE BROMIDE
     Indication: MYASTHENIA GRAVIS
     Dosage: 60 MG IN THE MORNING AND 30MG EVERY 8 HOURS (60MG-30MG-30MG)
     Route: 048
     Dates: start: 2012

REACTIONS (4)
  - Asthenia [Recovered/Resolved]
  - Product quality issue [Unknown]
  - Unevaluable event [Recovered/Resolved]
  - Malaise [Recovered/Resolved]

NARRATIVE: CASE EVENT DATE: 20160505
